FAERS Safety Report 19663888 (Version 2)
Quarter: 2021Q3

REPORT INFORMATION
  Report Type: Spontaneous
  Country: US (occurrence: US)
  Receive Date: 20210805
  Receipt Date: 20210813
  Transmission Date: 20211014
  Serious: Yes (Hospitalization)
  Sender: FDA-Public Use
  Company Number: US-TEVA-2021-US-1938291

PATIENT
  Age: 52 Year
  Sex: Male

DRUGS (8)
  1. VALGANCICLOVIR. [Suspect]
     Active Substance: VALGANCICLOVIR
     Indication: PROPHYLAXIS
     Dosage: 900 MILLIGRAM DAILY;
     Route: 065
  2. MYCOPHENOLATE [Concomitant]
     Active Substance: MYCOPHENOLIC ACID
     Indication: PRODUCT USED FOR UNKNOWN INDICATION
     Route: 065
  3. MYCOPHENOLIC ACID. [Suspect]
     Active Substance: MYCOPHENOLIC ACID
     Indication: IMMUNOSUPPRESSION
     Dosage: 1440 MILLIGRAM DAILY;
     Route: 065
  4. TACROLIMUS. [Suspect]
     Active Substance: TACROLIMUS
     Indication: IMMUNOSUPPRESSION
     Dosage: DOSE: 9?11 NG/ML AT 0?3 MONTHS; 7?9 NG/ML 3?6 MONTHS; 6?8 NG/ML AFTER 6 MONTHS
     Route: 065
  5. VALGANCICLOVIR. [Suspect]
     Active Substance: VALGANCICLOVIR
     Dosage: DOSE: HIGH DOSE
     Route: 065
  6. RABBIT. [Suspect]
     Active Substance: RABBIT
     Indication: PRODUCT USED FOR UNKNOWN INDICATION
     Route: 065
  7. CMVIG [Concomitant]
     Indication: CYTOMEGALOVIRUS VIRAEMIA
     Route: 050
  8. PREDNISONE. [Suspect]
     Active Substance: PREDNISONE
     Indication: IMMUNOSUPPRESSION
     Dosage: 20 MILLIGRAM DAILY; DOSE: TAPERED TO 5 MG AT 3 MONTHS
     Route: 065

REACTIONS (5)
  - Cytomegalovirus viraemia [Recovered/Resolved]
  - Pneumonia [Unknown]
  - Myelosuppression [Unknown]
  - Pathogen resistance [Recovered/Resolved]
  - Leukopenia [Unknown]
